FAERS Safety Report 11409472 (Version 1)
Quarter: 2015Q3

REPORT INFORMATION
  Report Type: Spontaneous
  Country: US (occurrence: None)
  Receive Date: 20150820
  Receipt Date: 20150820
  Transmission Date: 20151125
  Serious: No
  Sender: FDA-Public Use
  Company Number: None

PATIENT
  Age: 69 Year
  Sex: Female
  Weight: 99.34 kg

DRUGS (20)
  1. ACYCLOVIR. [Concomitant]
     Active Substance: ACYCLOVIR
  2. MULTI VITAMIN [Concomitant]
     Active Substance: VITAMINS
  3. CALCIUM [Concomitant]
     Active Substance: CALCIUM
  4. CRANBERRY EXTRACT [Concomitant]
     Active Substance: CRANBERRY JUICE
  5. HYDROCHLOROTHIAZIDE. [Concomitant]
     Active Substance: HYDROCHLOROTHIAZIDE
  6. HAIR SKIN NAILS PRODUCT [Concomitant]
  7. ASPIRIN. [Concomitant]
     Active Substance: ASPIRIN
  8. AMLODIPINE [Concomitant]
     Active Substance: AMLODIPINE BESYLATE
  9. MAGNESIUM [Concomitant]
     Active Substance: MAGNESIUM
  10. MELATONIN [Concomitant]
     Active Substance: MELATONIN
  11. FISH OIL [Concomitant]
     Active Substance: FISH OIL
  12. NORTRIPTYLINE [Concomitant]
     Active Substance: NORTRIPTYLINE
  13. FLUOXETINE [Concomitant]
     Active Substance: FLUOXETINE\FLUOXETINE HYDROCHLORIDE
  14. LEVOFLOXACIN 750 MG  GENERIC FOR LEVAQUIN [Suspect]
     Active Substance: LEVOFLOXACIN
     Indication: SINUSITIS
     Dosage: 1 DAILY 21 DAYS
     Route: 048
     Dates: start: 20150705, end: 20150730
  15. QVAR [Concomitant]
     Active Substance: BECLOMETHASONE DIPROPIONATE
  16. BENAZEPRIL [Concomitant]
     Active Substance: BENAZEPRIL HYDROCHLORIDE
  17. TOPROL XL (METOPROLOL SUCC) [Concomitant]
  18. KLOR-CON [Concomitant]
     Active Substance: POTASSIUM CHLORIDE
  19. CINNAMON. [Concomitant]
     Active Substance: CINNAMON
  20. DIGESTIVE ENZYMES [Concomitant]
     Active Substance: UNSPECIFIED INGREDIENT

REACTIONS (3)
  - Vision blurred [None]
  - Arthralgia [None]
  - Joint swelling [None]

NARRATIVE: CASE EVENT DATE: 20150722
